FAERS Safety Report 7690639-2 (Version None)
Quarter: 2011Q3

REPORT INFORMATION
  Report Type: 
  Country: None (occurrence: None)
  Receive Date: 20110812
  Receipt Date: 20110727
  Transmission Date: 20111222
  Serious: Yes (Other)
  Sender: FDA-Public Use
  Company Number: DSA_47309_2011

PATIENT
  Sex: Female

DRUGS (5)
  1. CALCIUM CARBONATE [Concomitant]
  2. ENALAPRIL MALEATE [Suspect]
     Indication: HYPERTENSION
     Dosage: DF ORAL
     Route: 048
     Dates: start: 19960101
  3. INDERAL [Concomitant]
  4. LEVOTHYROXINE SODIUM [Concomitant]
  5. ALPRAZOLAM [Concomitant]

REACTIONS (4)
  - NECK PAIN [None]
  - DRUG INEFFECTIVE [None]
  - THYROID CANCER [None]
  - HYPERTENSION [None]
